FAERS Safety Report 6185101-2 (Version None)
Quarter: 2009Q2

REPORT INFORMATION
  Report Type: 
  Country: None (occurrence: None)
  Receive Date: 20090511
  Receipt Date: 20090504
  Transmission Date: 20091009
  Serious: Yes (Other)
  Sender: FDA-Public Use
  Company Number: US-JNJFOC-20051103157

PATIENT
  Sex: Female
  Weight: 98.88 kg

DRUGS (11)
  1. RISPERDAL [Suspect]
  2. RISPERDAL [Suspect]
     Indication: PERSONALITY DISORDER
  3. ZYPREXA [Suspect]
     Indication: DRUG USE FOR UNKNOWN INDICATION
  4. SEROQUEL [Suspect]
     Indication: DRUG USE FOR UNKNOWN INDICATION
  5. IBUPROFEN [Concomitant]
  6. LORAZEPAM [Concomitant]
  7. SINGULAIR [Concomitant]
  8. TRIAMTERENE [Concomitant]
  9. AMBIEN [Concomitant]
  10. EFFEXOR [Concomitant]
  11. TEGRETOL [Concomitant]

REACTIONS (3)
  - DIABETES MELLITUS [None]
  - DIABETIC NEUROPATHY [None]
  - PANCREATITIS CHRONIC [None]
